FAERS Safety Report 25440435 (Version 1)
Quarter: 2025Q2

REPORT INFORMATION
  Report Type: Spontaneous
  Country: US (occurrence: None)
  Receive Date: 20250616
  Receipt Date: 20250616
  Transmission Date: 20250716
  Serious: Yes (unspecified)
  Sender: FDA-CTU
  Company Number: None

PATIENT
  Age: 36 Year
  Sex: Female
  Weight: 58.5 kg

DRUGS (1)
  1. MICONAZOLE NITRATE [Suspect]
     Active Substance: MICONAZOLE NITRATE
     Dates: start: 20250609, end: 20250611

REACTIONS (5)
  - Application site pain [None]
  - Genital burning sensation [None]
  - Genital pain [None]
  - Chemical burn [None]
  - Hypersensitivity [None]

NARRATIVE: CASE EVENT DATE: 20250613
